FAERS Safety Report 7032898-5 (Version None)
Quarter: 2010Q4

REPORT INFORMATION
  Report Type: 
  Country: None (occurrence: None)
  Receive Date: 20101007
  Receipt Date: 20101001
  Transmission Date: 20110411
  Serious: Yes (Life-Threatening, Other)
  Sender: FDA-Public Use
  Company Number: JP-ROCHE-709874

PATIENT
  Sex: Female
  Weight: 42 kg

DRUGS (3)
  1. ACTEMRA [Suspect]
     Indication: RHEUMATOID ARTHRITIS
     Route: 041
     Dates: start: 20100602, end: 20100602
  2. SULFAMETHOXAZOLE AND TRIMETHOPRIM [Suspect]
     Indication: PROPHYLAXIS
     Dosage: DRUG NAME: DAIPHEN, FORM: PERORAL AGENT.
     Route: 048
     Dates: start: 20100604, end: 20100611
  3. RHEUMATREX [Concomitant]
     Route: 048
     Dates: start: 20100402

REACTIONS (3)
  - DISSEMINATED INTRAVASCULAR COAGULATION [None]
  - RHABDOMYOLYSIS [None]
  - SEPSIS [None]
